FAERS Safety Report 6193388-5 (Version None)
Quarter: 2009Q2

REPORT INFORMATION
  Report Type: 
  Country: None (occurrence: None)
  Receive Date: 20090514
  Receipt Date: 20090514
  Transmission Date: 20091009
  Serious: Yes (Life-Threatening, Hospitalization)
  Sender: FDA-Public Use
  Company Number: None

PATIENT
  Sex: Male
  Weight: 108.8633 kg

DRUGS (1)
  1. AMIODARONE HCL [Suspect]

REACTIONS (2)
  - BLOOD DISORDER [None]
  - OXYGEN SATURATION ABNORMAL [None]
